FAERS Safety Report 4890481-1 (Version None)
Quarter: 2005Q4

REPORT INFORMATION
  Report Type: 
  Country: None (occurrence: None)
  Receive Date: 20051214
  Receipt Date: 20050815
  Transmission Date: 20060501
  Serious: No
  Sender: FDA-Public Use
  Company Number: S05-USA-03980-01

PATIENT
  Age: 46 Year
  Sex: Female

DRUGS (4)
  1. CAMPRAL [Suspect]
     Indication: ALCOHOLISM
     Dosage: 666 MG TID PO
     Route: 048
     Dates: start: 20050705, end: 20050812
  2. CYMBALTA [Concomitant]
  3. TRAZODONE [Concomitant]
  4. SYNTHROID [Concomitant]

REACTIONS (1)
  - ARTHRALGIA [None]
